FAERS Safety Report 9331230 (Version 1)
Quarter: 2013Q2

REPORT INFORMATION
  Report Type: Spontaneous
  Country: AU (occurrence: AU)
  Receive Date: 20130605
  Receipt Date: 20130605
  Transmission Date: 20140414
  Serious: Yes (Other)
  Sender: FDA-Public Use
  Company Number: AU-MYLANLABS-2013S1011085

PATIENT
  Age: 7 Decade
  Sex: Male

DRUGS (2)
  1. CLOPIDOGREL [Suspect]
     Indication: PRODUCT USED FOR UNKNOWN INDICATION
     Route: 048
     Dates: start: 20130426
  2. IRBESARTAN [Suspect]
     Indication: BLOOD PRESSURE
     Route: 048
     Dates: start: 20130426

REACTIONS (3)
  - Anaphylactic reaction [Recovered/Resolved]
  - Product taste abnormal [Recovered/Resolved]
  - Product substitution issue [Recovered/Resolved]
